FAERS Safety Report 8268321-2 (Version None)
Quarter: 2012Q2

REPORT INFORMATION
  Report Type: 
  Country: None (occurrence: None)
  Receive Date: 20120409
  Receipt Date: 20120327
  Transmission Date: 20120825
  Serious: Yes (Other)
  Sender: FDA-Public Use
  Company Number: JP-ROCHE-1056008

PATIENT
  Sex: Female

DRUGS (4)
  1. GATIFLOXACIN [Concomitant]
     Dates: start: 20091101, end: 20100301
  2. VISUDYNE [Concomitant]
     Dates: start: 20091201, end: 20100309
  3. RANIBIZUMAB [Suspect]
     Indication: AGE-RELATED MACULAR DEGENERATION
     Route: 050
     Dates: start: 20111126
  4. RANIBIZUMAB [Suspect]
     Dates: start: 20100309

REACTIONS (1)
  - RETINAL HAEMORRHAGE [None]
